FAERS Safety Report 11200144 (Version 4)
Quarter: 2016Q4

REPORT INFORMATION
  Report Type: Spontaneous
  Country: DK (occurrence: DK)
  Receive Date: 20150618
  Receipt Date: 20161220
  Transmission Date: 20170206
  Serious: Yes (Life-Threatening, Hospitalization, Disabling, Other)
  Sender: FDA-Public Use
  Company Number: DK-PFIZER INC-2015187263

PATIENT
  Age: 63 Year
  Sex: Male

DRUGS (11)
  1. SPIRON /00006201/ [Concomitant]
     Active Substance: SPIRONOLACTONE
     Dosage: 25 MG, 1X/DAY
     Route: 048
  2. ENACODAN [Concomitant]
     Dosage: 20 MG, 1X/DAY
     Route: 048
  3. FURIX [Concomitant]
     Active Substance: FUROSEMIDE
     Dosage: 40 MG, 3X/DAY
     Route: 048
  4. ATORVASTATIN [Concomitant]
     Active Substance: ATORVASTATIN
     Dosage: 20 MG, 1X/DAY
     Route: 048
  5. HJERTEMAGNYL /00002701/ [Concomitant]
     Active Substance: ASPIRIN
     Dosage: 75 MG, 1X/DAY
     Route: 048
  6. BRICANYL [Concomitant]
     Active Substance: TERBUTALINE SULFATE
     Dosage: 0.1 MG, 1X/DAY
     Route: 055
  7. FRAGMIN [Suspect]
     Active Substance: DALTEPARIN SODIUM
     Indication: INTRACARDIAC THROMBUS
     Dosage: UNK
     Route: 058
     Dates: start: 20140829, end: 20140923
  8. PINEX [Concomitant]
     Active Substance: ACETAMINOPHEN
     Dosage: 1 G, 4X/DAY
     Route: 048
  9. TRADOLAN [Concomitant]
     Active Substance: TRAMADOL
     Dosage: 50 MG, AS NEEDED
     Route: 048
  10. PANTOPRAZOLE [Concomitant]
     Active Substance: PANTOPRAZOLE SODIUM
     Dosage: 40 MG, 1X/DAY
     Route: 048
  11. METFORMIN [Concomitant]
     Active Substance: METFORMIN HYDROCHLORIDE
     Dosage: 1000 MG, 2X/DAY
     Route: 048

REACTIONS (24)
  - Acute myocardial infarction [Unknown]
  - Pain in extremity [Not Recovered/Not Resolved]
  - Brain injury [Unknown]
  - Atrial fibrillation [Recovered/Resolved]
  - Leg amputation [Unknown]
  - Skin discolouration [Recovered/Resolved]
  - Poor peripheral circulation [Recovered/Resolved]
  - Gangrene [Recovered/Resolved]
  - Heparin-induced thrombocytopenia [Recovered/Resolved]
  - Necrosis [Unknown]
  - Disorientation [Recovered/Resolved]
  - Generalised oedema [Recovered/Resolved]
  - Anal incontinence [Recovered/Resolved]
  - Urinary incontinence [Recovered/Resolved]
  - Peripheral coldness [Recovered/Resolved]
  - Pain [Not Recovered/Not Resolved]
  - Postoperative thrombosis [Recovered/Resolved with Sequelae]
  - Visual acuity reduced [Recovered/Resolved]
  - Wheelchair user [Not Recovered/Not Resolved]
  - Heart rate decreased [Recovered/Resolved]
  - Aortic thrombosis [Recovered/Resolved with Sequelae]
  - Pallor [Recovered/Resolved]
  - Thrombosis [Recovered/Resolved with Sequelae]
  - C-reactive protein increased [Recovered/Resolved]

NARRATIVE: CASE EVENT DATE: 20140911
